FAERS Safety Report 24158658 (Version 2)
Quarter: 2024Q3

REPORT INFORMATION
  Report Type: Spontaneous
  Country: US (occurrence: US)
  Receive Date: 20240731
  Receipt Date: 20240802
  Transmission Date: 20241017
  Serious: No
  Sender: SANDOZ
  Company Number: US-SANDOZ-SDZ2024US069579

PATIENT

DRUGS (1)
  1. POLYMYXIN B SULFATE\TRIMETHOPRIM [Suspect]
     Active Substance: POLYMYXIN B SULFATE\TRIMETHOPRIM
     Indication: Corneal laceration
     Dosage: UNK
     Route: 047

REACTIONS (3)
  - Eye irritation [Unknown]
  - Product dispensing error [Unknown]
  - Product packaging confusion [Unknown]
